FAERS Safety Report 18739352 (Version 1)
Quarter: 2021Q1

REPORT INFORMATION
  Report Type: Spontaneous
  Country: CL (occurrence: CL)
  Receive Date: 20210114
  Receipt Date: 20210114
  Transmission Date: 20210419
  Serious: Yes (Other)
  Sender: FDA-Public Use
  Company Number: CL-CHEPLA-C20210146

PATIENT
  Age: 42 Year
  Sex: Male

DRUGS (7)
  1. HEPARIN [Suspect]
     Active Substance: HEPARIN SODIUM
     Dates: start: 201810
  2. ORLISTAT. [Suspect]
     Active Substance: ORLISTAT
     Indication: HYPERTRIGLYCERIDAEMIA
     Dosage: 120 MG 3 TIMES A DAY
     Dates: start: 201712
  3. ACENOCOUMAROL [Suspect]
     Active Substance: ACENOCOUMAROL
     Indication: ANTICOAGULANT THERAPY
     Dates: start: 201712, end: 201810
  4. FENOFIBRATE. [Suspect]
     Active Substance: FENOFIBRATE
     Dosage: 200 MG/DAY
     Dates: start: 201810
  5. ROSUVASTATIN. [Suspect]
     Active Substance: ROSUVASTATIN
     Dosage: 10 MG/DAY
     Dates: start: 201810
  6. CIPROFIBRATE [Suspect]
     Active Substance: CIPROFIBRATE
     Indication: HYPERTRIGLYCERIDAEMIA
     Dosage: 200 MG / DAY
     Dates: start: 201712, end: 201810
  7. INSULIN [Suspect]
     Active Substance: INSULIN NOS
     Dates: start: 201810

REACTIONS (4)
  - Abdominal pain [Unknown]
  - Pancreatitis acute [Unknown]
  - Product use in unapproved indication [Unknown]
  - Lipaemia retinalis [Unknown]

NARRATIVE: CASE EVENT DATE: 201810
